FAERS Safety Report 12635406 (Version 1)
Quarter: 2016Q3

REPORT INFORMATION
  Report Type: Spontaneous
  Country: IT (occurrence: IT)
  Receive Date: 20160809
  Receipt Date: 20160809
  Transmission Date: 20161109
  Serious: Yes (Hospitalization, Other)
  Sender: FDA-Public Use
  Company Number: IT-SCIEGEN PHARMACEUTICALS INC-2016SCILIT00349

PATIENT
  Age: 47 Year
  Sex: Male

DRUGS (3)
  1. ARIPIPRAZOLE. [Suspect]
     Active Substance: ARIPIPRAZOLE
     Indication: DEPRESSION
     Dosage: UNK
     Route: 065
  2. BUPROPION HYDROCHLORIDE. [Suspect]
     Active Substance: BUPROPION HYDROCHLORIDE
     Indication: DEPRESSION
     Dosage: UNK
     Route: 065
  3. VALPROIC ACID. [Suspect]
     Active Substance: VALPROIC ACID
     Indication: DEPRESSION
     Dosage: UNK
     Route: 065

REACTIONS (7)
  - Diplopia [Recovered/Resolved]
  - Quadrantanopia [Unknown]
  - Dysarthria [Recovered/Resolved]
  - Hemiplegia [Recovering/Resolving]
  - Cerebrovascular accident [Unknown]
  - Basilar artery occlusion [Unknown]
  - Altered state of consciousness [Recovering/Resolving]
